FAERS Safety Report 24116546 (Version 1)
Quarter: 2024Q3

REPORT INFORMATION
  Report Type: Spontaneous
  Country: US (occurrence: US)
  Receive Date: 20240722
  Receipt Date: 20240722
  Transmission Date: 20241016
  Serious: No
  Sender: ASTELLAS
  Company Number: US-ASTELLAS-2024US005714

PATIENT
  Sex: Female

DRUGS (1)
  1. MYRBETRIQ [Suspect]
     Active Substance: MIRABEGRON
     Indication: Cystocele
     Route: 065

REACTIONS (6)
  - Blister [Unknown]
  - Asthenia [Unknown]
  - Fatigue [Unknown]
  - Eye disorder [Unknown]
  - Cystocele [Not Recovered/Not Resolved]
  - Off label use [Unknown]
